FAERS Safety Report 12543817 (Version 2)
Quarter: 2022Q2

REPORT INFORMATION
  Report Type: Spontaneous
  Country: US (occurrence: US)
  Receive Date: 20160711
  Receipt Date: 20220419
  Transmission Date: 20220720
  Serious: No
  Sender: FDA-Public Use
  Company Number: US-JAZZ-2016-US-000284

PATIENT
  Age: 46 Year
  Sex: Female
  Weight: 54.4 kg

DRUGS (10)
  1. XYREM [Suspect]
     Active Substance: SODIUM OXYBATE
     Indication: Narcolepsy
     Dosage: 2.25 G, BID
     Route: 048
     Dates: start: 201507, end: 201508
  2. XYREM [Suspect]
     Active Substance: SODIUM OXYBATE
     Indication: Cataplexy
     Dosage: DOSE ADJUSTMENTS
     Route: 048
     Dates: start: 2015, end: 2015
  3. XYREM [Suspect]
     Active Substance: SODIUM OXYBATE
     Dosage: 4.5 G, BID
     Route: 048
     Dates: start: 201508
  4. XYREM [Suspect]
     Active Substance: SODIUM OXYBATE
     Dosage: 4.5 G, FIRST DOSE
     Route: 048
  5. XYREM [Suspect]
     Active Substance: SODIUM OXYBATE
     Dosage: 3.75 G, SECOND DOSE
     Route: 048
  6. PROBIOTIC PEARLS [Concomitant]
     Indication: Product used for unknown indication
     Dosage: UNK
     Dates: start: 20151206
  7. ZYRTEC-D [Concomitant]
     Active Substance: CETIRIZINE HYDROCHLORIDE\PSEUDOEPHEDRINE HYDROCHLORIDE
     Indication: Product used for unknown indication
     Dosage: 120 MILLIGRAM AS NEEDED
     Route: 048
     Dates: start: 20150618
  8. BACLOFEN [Concomitant]
     Active Substance: BACLOFEN
  9. MODAFINIL [Concomitant]
     Active Substance: MODAFINIL
     Dosage: 100 MILLIGRAM, BID AS NEEDED
     Route: 048
  10. SODIUM OXYBATE [Concomitant]
     Active Substance: SODIUM OXYBATE
     Dosage: 4.5 GRAM, BID NIGHTLY
     Route: 048

REACTIONS (4)
  - Tinnitus [Not Recovered/Not Resolved]
  - Amnesia [Unknown]
  - Insomnia [Unknown]
  - Somnolence [Unknown]

NARRATIVE: CASE EVENT DATE: 20151201
